FAERS Safety Report 6725082-3 (Version None)
Quarter: 2010Q2

REPORT INFORMATION
  Report Type: 
  Country: None (occurrence: None)
  Receive Date: 20100514
  Receipt Date: 20100423
  Transmission Date: 20101027
  Serious: Yes (Hospitalization)
  Sender: FDA-Public Use
  Company Number: US-BAYER-200939445NA

PATIENT
  Age: 33 Year
  Sex: Female
  Weight: 61 kg

DRUGS (6)
  1. YASMIN [Suspect]
     Indication: CONTRACEPTION
     Route: 048
     Dates: start: 20010101, end: 20070101
  2. DOXYCYCLINE HYCLATE [Concomitant]
  3. DARVOCET-N 100 [Concomitant]
  4. ALBUTEROL [Concomitant]
  5. LORATADINE [Concomitant]
  6. FLONASE [Concomitant]

REACTIONS (4)
  - DYSPNOEA [None]
  - PLEURITIC PAIN [None]
  - PULMONARY EMBOLISM [None]
  - PULMONARY INFARCTION [None]
